FAERS Safety Report 17032603 (Version 2)
Quarter: 2019Q4

REPORT INFORMATION
  Report Type: Report from Study
  Country: BR (occurrence: BR)
  Receive Date: 20191114
  Receipt Date: 20191114
  Transmission Date: 20200122
  Serious: Yes (Other)
  Sender: FDA-Public Use
  Company Number: NVSC2019BR016943

PATIENT
  Sex: Male

DRUGS (2)
  1. VOTRIENT [Suspect]
     Active Substance: PAZOPANIB HYDROCHLORIDE
     Indication: PRODUCT USED FOR UNKNOWN INDICATION
     Dosage: 200 MG OR 400 MG, Q12H
     Route: 065
  2. SUNITINIB [Suspect]
     Active Substance: SUNITINIB
     Indication: PRODUCT USED FOR UNKNOWN INDICATION
     Dosage: UNK
     Route: 065

REACTIONS (20)
  - Nausea [Recovering/Resolving]
  - Inappropriate schedule of product administration [Unknown]
  - Hypoalbuminaemia [Unknown]
  - Blood creatinine increased [Unknown]
  - Abdominal pain upper [Recovered/Resolved]
  - Palmar-plantar erythrodysaesthesia syndrome [Unknown]
  - Cytopenia [Unknown]
  - Decreased appetite [Recovered/Resolved]
  - General physical condition abnormal [Recovering/Resolving]
  - Drug ineffective [Unknown]
  - Liver function test increased [Recovered/Resolved]
  - Quality of life decreased [Unknown]
  - Pigmentation disorder [Unknown]
  - Hypophosphataemia [Unknown]
  - Fatigue [Unknown]
  - Transaminases increased [Unknown]
  - Blood pressure fluctuation [Recovered/Resolved]
  - Taste disorder [Unknown]
  - Blood bilirubin increased [Unknown]
  - Yellow skin [Recovering/Resolving]
